FAERS Safety Report 8806085 (Version 1)
Quarter: 2012Q4

REPORT INFORMATION
  Report Type: 
  Country: AU (occurrence: AU)
  Receive Date: 20120925
  Receipt Date: 20120925
  Transmission Date: 20130627
  Serious: Yes (Hospitalization)
  Sender: FDA-Public Use
  Company Number: AU-BRISTOL-MYERS SQUIBB COMPANY-16963126

PATIENT
  Age: 95 Year
  Sex: Female

DRUGS (2)
  1. AVAPRO [Suspect]
  2. CELEBREX [Suspect]

REACTIONS (2)
  - Renal failure acute [Unknown]
  - Cardiac failure congestive [Unknown]
